FAERS Safety Report 6543611-X (Version None)
Quarter: 2010Q1

REPORT INFORMATION
  Report Type: 
  Country: None (occurrence: None)
  Receive Date: 20100115
  Receipt Date: 20100108
  Transmission Date: 20100710
  Serious: Yes (Hospitalization)
  Sender: FDA-Public Use
  Company Number: 2008SP022787

PATIENT
  Age: 57 Year
  Sex: Female
  Weight: 97 kg

DRUGS (5)
  1. TEMOZOLOMIDE [Suspect]
     Indication: OVARIAN CANCER
     Dosage: 200 MG/M2; PO
     Route: 048
     Dates: start: 20081014, end: 20081019
  2. ABT-888 (INVESTIGATIONAL DRUG) [Suspect]
     Indication: OVARIAN CANCER
     Dosage: 40 MG;BID;PO
     Route: 048
     Dates: start: 20081015, end: 20081019
  3. PANTOPRAZOLE [Concomitant]
  4. METOPROLOL [Concomitant]
  5. SODIUM CHLORIDE [Concomitant]

REACTIONS (11)
  - ANAEMIA [None]
  - BLOOD SODIUM DECREASED [None]
  - COUGH [None]
  - METASTASES TO STOMACH [None]
  - OBSTRUCTION GASTRIC [None]
  - PLATELET COUNT INCREASED [None]
  - PLEURAL EFFUSION [None]
  - PNEUMONIA [None]
  - PYREXIA [None]
  - RASH [None]
  - TREATMENT NONCOMPLIANCE [None]
